FAERS Safety Report 18948031 (Version 3)
Quarter: 2021Q1

REPORT INFORMATION
  Report Type: Report from Study
  Country: US (occurrence: US)
  Receive Date: 20210226
  Receipt Date: 20210325
  Transmission Date: 20210420
  Serious: Yes (Death, Life-Threatening, Hospitalization)
  Sender: FDA-Public Use
  Company Number: US-CELGENEUS-USA-20210206569

PATIENT
  Age: 66 Year
  Sex: Male
  Weight: 69 kg

DRUGS (9)
  1. JCAR017 [Suspect]
     Active Substance: LISOCABTAGENE MARALEUCEL
     Indication: B-CELL LYMPHOMA
     Dosage: 100 X 10^6 CAR+ T CELLS X ONCE
     Route: 042
     Dates: start: 20210203, end: 20210203
  2. FLUDARABINE [Suspect]
     Active Substance: FLUDARABINE PHOSPHATE
     Indication: B-CELL LYMPHOMA
     Dosage: 53.5 MG X ONCE
     Route: 042
     Dates: start: 20210129, end: 20210129
  3. CYCLOPHOSPHAMIDE. [Suspect]
     Active Substance: CYCLOPHOSPHAMIDE
     Dosage: 530 MG X ONCE
     Route: 042
     Dates: start: 20210131, end: 20210131
  4. FLUDARABINE [Suspect]
     Active Substance: FLUDARABINE PHOSPHATE
     Dosage: 53.5 MG X ONCE
     Route: 042
     Dates: start: 20210130, end: 20210130
  5. CYCLOPHOSPHAMIDE. [Suspect]
     Active Substance: CYCLOPHOSPHAMIDE
     Dosage: 530 MG X ONCE
     Route: 042
     Dates: start: 20210130, end: 20210130
  6. BENDAMUSTINE [Concomitant]
     Active Substance: BENDAMUSTINE
     Indication: B-CELL LYMPHOMA
     Dosage: 165 MG
     Route: 065
     Dates: start: 20210112, end: 20210113
  7. RITUXIMAB. [Concomitant]
     Active Substance: RITUXIMAB
     Indication: B-CELL LYMPHOMA
     Dosage: 700 MG
     Route: 065
     Dates: start: 20210112, end: 20210113
  8. FLUDARABINE [Suspect]
     Active Substance: FLUDARABINE PHOSPHATE
     Dosage: 53.5 MG X ONCE
     Route: 042
     Dates: start: 20210131, end: 20210131
  9. CYCLOPHOSPHAMIDE. [Suspect]
     Active Substance: CYCLOPHOSPHAMIDE
     Indication: B-CELL LYMPHOMA
     Dosage: 530 MG X ONCE
     Route: 042
     Dates: start: 20210129, end: 20210129

REACTIONS (1)
  - Haemophagocytic lymphohistiocytosis [Fatal]

NARRATIVE: CASE EVENT DATE: 20210209
